FAERS Safety Report 8598338-X (Version None)
Quarter: 2012Q3

REPORT INFORMATION
  Report Type: 
  Country: None (occurrence: None)
  Receive Date: 20120806
  Receipt Date: 20120806
  Transmission Date: 20120928
  Serious: No
  Sender: FDA-Public Use
  Company Number: None

PATIENT
  Age: 34 Year
  Sex: Male
  Weight: 82 kg

DRUGS (1)
  1. PANADEINE GLAXOSMITHKLINE [Suspect]
     Indication: PROCEDURAL PAIN
     Dosage: 500MG/8MG 2 PO
     Route: 048
     Dates: start: 20110805

REACTIONS (2)
  - NIGHTMARE [None]
  - INSOMNIA [None]
